FAERS Safety Report 7535874-9 (Version None)
Quarter: 2011Q2

REPORT INFORMATION
  Report Type: 
  Country: None (occurrence: None)
  Receive Date: 20110524
  Receipt Date: 20110218
  Transmission Date: 20111010
  Serious: Yes (Hospitalization)
  Sender: FDA-Public Use
  Company Number: 017657

PATIENT
  Sex: Female
  Weight: 64 kg

DRUGS (4)
  1. AZATHIOPRINE [Concomitant]
  2. PENTASA [Concomitant]
  3. ENTOCORT EC [Concomitant]
  4. CIMZIA [Suspect]
     Indication: CROHN'S DISEASE
     Dosage: (400 MG 1X/4 WEEKS SUBCUTANEOUS)
     Route: 058
     Dates: start: 20100601

REACTIONS (2)
  - DEEP VEIN THROMBOSIS [None]
  - CROHN'S DISEASE [None]
